FAERS Safety Report 16135967 (Version 2)
Quarter: 2019Q2

REPORT INFORMATION
  Report Type: Spontaneous
  Country: US (occurrence: US)
  Receive Date: 20190329
  Receipt Date: 20190408
  Transmission Date: 20190711
  Serious: Yes (Other)
  Sender: FDA-Public Use
  Company Number: US-009507513-1903USA011440

PATIENT
  Age: 28 Year
  Sex: Female
  Weight: 83.45 kg

DRUGS (2)
  1. NEXPLANON [Suspect]
     Active Substance: ETONOGESTREL
     Indication: CONTRACEPTION
     Dosage: ^1 ROD EVERY 3 YEARS^
     Route: 058
     Dates: start: 20160328
  2. NEXPLANON [Suspect]
     Active Substance: ETONOGESTREL
     Dosage: ^1 ROD EVERY 3 YEARS^
     Route: 059
     Dates: start: 201903

REACTIONS (6)
  - Overdose [Unknown]
  - Device dislocation [Not Recovered/Not Resolved]
  - No adverse event [Unknown]
  - Complication of device removal [Not Recovered/Not Resolved]
  - Device deployment issue [Not Recovered/Not Resolved]
  - Complication associated with device [Recovered/Resolved]

NARRATIVE: CASE EVENT DATE: 20160328
